FAERS Safety Report 9734378 (Version 1)
Quarter: 2013Q4

REPORT INFORMATION
  Report Type: Report from Study
  Country: US (occurrence: US)
  Receive Date: 20131206
  Receipt Date: 20131206
  Transmission Date: 20140711
  Serious: Yes (Other)
  Sender: FDA-Public Use
  Company Number: US-ROCHE-1314480

PATIENT
  Sex: Female

DRUGS (14)
  1. XOLAIR [Suspect]
     Indication: ASTHMA
     Dosage: Q4WEEKS Q2WEEKS
     Route: 065
  2. XOLAIR [Suspect]
     Indication: HYPERSENSITIVITY
  3. ADVAIR DISKUS [Concomitant]
     Dosage: 500-50 MCG/DOSE, 1 PUFF TWICE A DAY
     Route: 065
  4. XOPENEX HFA [Concomitant]
     Dosage: EVERY 4-6 HOURS AS NEEDED
     Route: 065
  5. ALBUTEROL SULFATE [Concomitant]
     Dosage: 2 PUFFS AS NEEDED EVERY 4-6 HOURS
     Route: 065
  6. CRESTOR [Concomitant]
     Dosage: 1 TABLET ONCE A DAY
     Route: 065
  7. ACETAMINOPHEN [Concomitant]
     Dosage: 10-325MG, AS DIRECTED
     Route: 065
  8. LOPRESSOR [Concomitant]
     Dosage: 1 TABLET TWICE A DAY
     Route: 065
  9. SYNTHROID [Concomitant]
     Dosage: 137MCG, IN THE MORNING ONCE A DAY
     Route: 065
  10. METFORMIN HCL [Concomitant]
     Dosage: 1 TABLET WITH MEALS TWICE A DAY
     Route: 065
  11. IBUPROFEN [Concomitant]
     Dosage: 1 TABLET 3 TIMES A DAY
     Route: 065
  12. PRISTIQ [Concomitant]
     Dosage: 1 TABLET ONCE A DAY
     Route: 065
  13. GLIPIZIDE [Concomitant]
     Dosage: 1 TABLET ONCE A DAY
     Route: 065
  14. POTASSIUM CHLORIDE [Concomitant]
     Dosage: 10MEQ, 1 CAPSULE TWICE A DAY
     Route: 065

REACTIONS (2)
  - Depression [Unknown]
  - Hypercholesterolaemia [Unknown]
